FAERS Safety Report 7601992-X (Version None)
Quarter: 2011Q3

REPORT INFORMATION
  Report Type: 
  Country: None (occurrence: None)
  Receive Date: 20110711
  Receipt Date: 20110706
  Transmission Date: 20111222
  Serious: Yes (Other)
  Sender: FDA-Public Use
  Company Number: JP-PFIZER INC-2011132885

PATIENT
  Age: 80 Year
  Sex: Male

DRUGS (6)
  1. FLIVAS [Concomitant]
     Dosage: UNK
  2. CASODEX [Concomitant]
     Dosage: UNK
  3. LYRICA [Suspect]
     Dosage: 75 MG/DAY
     Route: 048
     Dates: start: 20110511, end: 20110518
  4. LYRICA [Suspect]
     Dosage: 25 MG, 1X/DAY
     Route: 048
     Dates: start: 20110603, end: 20110614
  5. LYRICA [Suspect]
     Dosage: 25 MG, 2X/DAY
     Route: 048
     Dates: start: 20110519, end: 20110614
  6. PLETAL [Concomitant]
     Dosage: UNK

REACTIONS (2)
  - BLOOD ALKALINE PHOSPHATASE INCREASED [None]
  - SOMNOLENCE [None]
